FAERS Safety Report 12943733 (Version 1)
Quarter: 2016Q4

REPORT INFORMATION
  Report Type: Spontaneous
  Country: US (occurrence: US)
  Receive Date: 20161115
  Receipt Date: 20161115
  Transmission Date: 20170207
  Serious: No
  Sender: FDA-Public Use
  Company Number: US-ROCHE-1143589

PATIENT
  Age: 29 Year
  Sex: Female

DRUGS (3)
  1. DOCETAXEL. [Concomitant]
     Active Substance: DOCETAXEL
     Route: 065
  2. TAXOL [Concomitant]
     Active Substance: PACLITAXEL
     Route: 065
  3. HERCEPTIN [Suspect]
     Active Substance: TRASTUZUMAB
     Indication: BREAST CANCER
     Dosage: LAST DOSE ON 04 OCT 2012
     Route: 042
     Dates: end: 20121004

REACTIONS (2)
  - Exposure during pregnancy [Unknown]
  - Oligohydramnios [Unknown]
